FAERS Safety Report 10102325 (Version 1)
Quarter: 2014Q2

REPORT INFORMATION
  Report Type: Spontaneous
  Country: FR (occurrence: FR)
  Receive Date: 20140424
  Receipt Date: 20140424
  Transmission Date: 20141212
  Serious: Yes (Hospitalization)
  Sender: FDA-Public Use
  Company Number: FR-ASTRAZENECA-2014SE26691

PATIENT
  Age: 62 Year
  Sex: Male

DRUGS (12)
  1. INEXIUM [Suspect]
     Route: 048
     Dates: end: 20140331
  2. BRISTOPEN [Suspect]
     Dates: start: 20140213, end: 20140401
  3. TAVANIC [Suspect]
     Route: 048
     Dates: start: 20140314, end: 20140331
  4. DEPAKINE [Suspect]
     Dosage: 500 MG IN THE MORNING AND 1000 MG AT NIGHT
  5. RIFAMPICINE [Suspect]
     Route: 048
     Dates: start: 20140213, end: 20140328
  6. LOVENOX [Concomitant]
  7. INEGY [Concomitant]
     Dosage: 10/20 MG, 1 DF EVERY DAY
  8. BISOPROLOL [Concomitant]
  9. LASILIX [Concomitant]
  10. AERIUS [Concomitant]
  11. ZINC [Concomitant]
  12. KARDEGIC [Concomitant]

REACTIONS (2)
  - Neutropenia [Unknown]
  - Leukopenia [Unknown]
